FAERS Safety Report 10382580 (Version 2)
Quarter: 2014Q3

REPORT INFORMATION
  Report Type: Spontaneous
  Country: US (occurrence: US)
  Receive Date: 20140813
  Receipt Date: 20140813
  Transmission Date: 20150326
  Serious: No
  Sender: FDA-Public Use
  Company Number: US-SANOFI-AVENTIS-2012SA005312

PATIENT
  Age: 81 Year
  Sex: Female

DRUGS (5)
  1. ITAVASTATIN [Suspect]
     Active Substance: PITAVASTATIN
     Indication: BLOOD CHOLESTEROL
     Route: 065
     Dates: end: 201105
  2. MULTAQ [Suspect]
     Active Substance: DRONEDARONE
     Indication: ATRIAL FIBRILLATION
     Route: 048
     Dates: start: 201012
  3. ITAVASTATIN [Suspect]
     Active Substance: PITAVASTATIN
     Indication: BLOOD CHOLESTEROL
     Route: 065
     Dates: start: 201110
  4. ALL OTHER THERAPEUTIC PRODUCTS [Suspect]
     Active Substance: UNSPECIFIED INGREDIENT
     Indication: BLOOD CHOLESTEROL
     Route: 065
  5. WELCHOL [Suspect]
     Active Substance: COLESEVELAM HYDROCHLORIDE
     Indication: BLOOD CHOLESTEROL
     Route: 065
     Dates: end: 201105

REACTIONS (10)
  - Underdose [Unknown]
  - Nasopharyngitis [Unknown]
  - Feeling hot [Unknown]
  - Micturition urgency [Unknown]
  - Heart rate increased [Unknown]
  - Chills [Recovered/Resolved]
  - Fatigue [Unknown]
  - Nausea [Unknown]
  - Tremor [Unknown]
  - Vomiting [Unknown]
